FAERS Safety Report 14999539 (Version 1)
Quarter: 2018Q2

REPORT INFORMATION
  Report Type: Spontaneous
  Country: US (occurrence: US)
  Receive Date: 20180612
  Receipt Date: 20180612
  Transmission Date: 20180711
  Serious: Yes (Hospitalization, Other)
  Sender: FDA-Public Use
  Company Number: US-BION-007231

PATIENT
  Age: 26 Year
  Sex: Male

DRUGS (2)
  1. LOPERAMIDE HYDROCHLORIDE. [Suspect]
     Active Substance: LOPERAMIDE HYDROCHLORIDE
     Dosage: 100-250 MG
  2. CIMETIDINE [Interacting]
     Active Substance: CIMETIDINE
     Dosage: 400 MG OF CIMETIDINE DAILY

REACTIONS (4)
  - Drug level increased [Unknown]
  - Drug abuse [Unknown]
  - Torsade de pointes [Recovered/Resolved]
  - Drug interaction [Unknown]
